FAERS Safety Report 8308475-2 (Version None)
Quarter: 2012Q2

REPORT INFORMATION
  Report Type: 
  Country: None (occurrence: None)
  Receive Date: 20120424
  Receipt Date: 20120409
  Transmission Date: 20120825
  Serious: Yes (Other)
  Sender: FDA-Public Use
  Company Number: FR-ROCHE-1058614

PATIENT

DRUGS (1)
  1. AVASTIN [Suspect]
     Indication: MYELODYSPLASTIC SYNDROME
     Dosage: EVERY 2 WEEKS FOR 12 WEEKS (6 CYCLES)
     Route: 042

REACTIONS (1)
  - RETINAL VEIN THROMBOSIS [None]
